FAERS Safety Report 6671934-2 (Version None)
Quarter: 2010Q2

REPORT INFORMATION
  Report Type: 
  Country: None (occurrence: None)
  Receive Date: 20100407
  Receipt Date: 20100326
  Transmission Date: 20101027
  Serious: Yes (Other)
  Sender: FDA-Public Use
  Company Number: FR-PFIZER INC-2010010345

PATIENT
  Age: 38 Year
  Sex: Male

DRUGS (2)
  1. LIPUR [Suspect]
     Indication: HYPERTRIGLYCERIDAEMIA
     Dosage: UNK
     Dates: start: 20070101, end: 20090927
  2. LEVOTHYROX [Concomitant]
     Indication: AUTOIMMUNE THYROIDITIS
     Dosage: 125 UG, UNK

REACTIONS (3)
  - INFERTILITY MALE [None]
  - SPERM COUNT DECREASED [None]
  - URTICARIA [None]
